FAERS Safety Report 8834984 (Version 1)
Quarter: 2012Q4

REPORT INFORMATION
  Report Type: 
  Country: US (occurrence: US)
  Receive Date: 20121011
  Receipt Date: 20121011
  Transmission Date: 20130627
  Serious: No
  Sender: FDA-Public Use
  Company Number: US-BIOGENIDEC-2012BI041390

PATIENT
  Age: 64 Year
  Sex: Female

DRUGS (1)
  1. AVONEX [Suspect]
     Indication: MULTIPLE SCLEROSIS
     Route: 030
     Dates: start: 20110725

REACTIONS (4)
  - Influenza like illness [Recovered/Resolved]
  - Injection site rash [Recovered/Resolved]
  - Inappropriate schedule of drug administration [Recovered/Resolved]
  - Injection site swelling [Recovered/Resolved]
